FAERS Safety Report 7672119-3 (Version None)
Quarter: 2011Q3

REPORT INFORMATION
  Report Type: 
  Country: None (occurrence: None)
  Receive Date: 20110809
  Receipt Date: 20110801
  Transmission Date: 20111222
  Serious: Yes (Other)
  Sender: FDA-Public Use
  Company Number: PHHY2011FR66124

PATIENT
  Sex: Male
  Weight: 57 kg

DRUGS (5)
  1. ZOLEDRONOC ACID [Suspect]
     Indication: OSTEOPOROSIS
     Dosage: 5 MG, UNK
     Route: 042
     Dates: start: 20110719
  2. METHOTREXATE SODIUM [Concomitant]
     Indication: MULTIPLE SCLEROSIS
  3. FOLIC ACID [Concomitant]
  4. LIORESAL [Concomitant]
     Indication: MULTIPLE SCLEROSIS
  5. METHOTREXATE [Concomitant]
     Indication: RHEUMATOID ARTHRITIS
     Dosage: 25 MG, QW
     Route: 058
     Dates: start: 20110501

REACTIONS (14)
  - MYALGIA [None]
  - GAIT DISTURBANCE [None]
  - MUSCLE SPASMS [None]
  - TREMOR [None]
  - PAIN [None]
  - MONOPLEGIA [None]
  - PYREXIA [None]
  - NAUSEA [None]
  - DIARRHOEA [None]
  - INFLUENZA LIKE ILLNESS [None]
  - VERTIGO [None]
  - ARTHRALGIA [None]
  - PARAESTHESIA [None]
  - ASTHENIA [None]
